FAERS Safety Report 5905177-4 (Version None)
Quarter: 2008Q4

REPORT INFORMATION
  Report Type: 
  Country: None (occurrence: None)
  Receive Date: 20081001
  Receipt Date: 20080925
  Transmission Date: 20090506
  Serious: Yes (Death, Hospitalization, Other)
  Sender: FDA-Public Use
  Company Number: US-BAXTER-2008BH010177

PATIENT
  Age: 77 Year
  Sex: Female

DRUGS (9)
  1. HEPARIN SODIUM INJECTION [Suspect]
     Indication: THROMBOSIS PROPHYLAXIS
     Route: 042
     Dates: start: 20071113, end: 20080113
  2. HEPARIN SODIUM INJECTION [Suspect]
     Indication: THROMBOSIS
     Route: 042
     Dates: start: 20071113, end: 20080113
  3. HEPARIN SODIUM INJECTION [Suspect]
     Route: 042
     Dates: start: 20071113, end: 20080113
  4. HEPARIN SODIUM INJECTION [Suspect]
     Route: 042
     Dates: start: 20071113, end: 20080113
  5. HEPARIN SODIUM INJECTION [Suspect]
     Route: 042
     Dates: start: 20071113, end: 20080113
  6. HEPARIN SODIUM INJECTION [Suspect]
     Route: 042
     Dates: start: 20071113, end: 20080113
  7. COUMADIN [Concomitant]
     Indication: DRUG USE FOR UNKNOWN INDICATION
     Dosage: DOSE UNIT:UNKNOWN
     Route: 065
  8. XANAX [Concomitant]
     Indication: DRUG USE FOR UNKNOWN INDICATION
     Dosage: DOSE UNIT:UNKNOWN
     Route: 065
  9. REMERON [Concomitant]
     Indication: DRUG USE FOR UNKNOWN INDICATION
     Dosage: DOSE UNIT:UNKNOWN
     Route: 065

REACTIONS (3)
  - DEEP VEIN THROMBOSIS [None]
  - DYSPNOEA [None]
  - PULMONARY HYPERTENSION [None]
